FAERS Safety Report 19360351 (Version 1)
Quarter: 2021Q2

REPORT INFORMATION
  Report Type: Spontaneous
  Country: US (occurrence: US)
  Receive Date: 20210601
  Receipt Date: 20210601
  Transmission Date: 20210717
  Serious: No
  Sender: FDA-Public Use
  Company Number: US-ANAZAOHEALTH CORPORATION-2112179

PATIENT
  Age: 55 Year
  Sex: Male
  Weight: 104.55 kg

DRUGS (5)
  1. LAST PELLET IMPLANTATION ON 02/09/2021 ? TWELVE (12) TESTOSTERONE 200 [Suspect]
     Active Substance: TESTOSTERONE
     Route: 058
     Dates: start: 20210209
  2. TESTOSTERONE. [Concomitant]
     Active Substance: TESTOSTERONE
     Route: 058
     Dates: start: 20200904
  3. TESTOSTERONE. [Concomitant]
     Active Substance: TESTOSTERONE
     Route: 058
     Dates: start: 20200407
  4. TESTOSTERONE. [Concomitant]
     Active Substance: TESTOSTERONE
     Route: 058
     Dates: start: 20200323
  5. TESTOSTERONE. [Concomitant]
     Active Substance: TESTOSTERONE
     Route: 058
     Dates: start: 20200323

REACTIONS (1)
  - Deep vein thrombosis [Unknown]

NARRATIVE: CASE EVENT DATE: 20210508
